FAERS Safety Report 24853995 (Version 1)
Quarter: 2025Q1

REPORT INFORMATION
  Report Type: Spontaneous
  Country: US (occurrence: US)
  Receive Date: 20250117
  Receipt Date: 20250117
  Transmission Date: 20250408
  Serious: No
  Sender: ENDO
  Company Number: ENDG24-00428

PATIENT
  Age: 26 Year
  Sex: Female
  Weight: 103.86 kg

DRUGS (1)
  1. PERCOCET [Suspect]
     Active Substance: ACETAMINOPHEN\OXYCODONE HYDROCHLORIDE
     Indication: Afterbirth pain
     Route: 048
     Dates: start: 20040827, end: 20040827

REACTIONS (3)
  - Restlessness [Recovered/Resolved]
  - Insomnia [Recovered/Resolved]
  - Pruritus [Recovered/Resolved]

NARRATIVE: CASE EVENT DATE: 20040827
